FAERS Safety Report 12708674 (Version 1)
Quarter: 2016Q3

REPORT INFORMATION
  Report Type: Spontaneous
  Country: BR (occurrence: BR)
  Receive Date: 20160901
  Receipt Date: 20160901
  Transmission Date: 20161109
  Serious: Yes (Other)
  Sender: FDA-Public Use
  Company Number: ALCN2016BR005848

PATIENT
  Sex: Male
  Weight: 115 kg

DRUGS (3)
  1. VITALUX PLUS [Suspect]
     Active Substance: VITAMINS
     Indication: RETINAL DYSTROPHY
     Dosage: 1 DF, (EACH 02 DAYS)
     Route: 065
     Dates: start: 201606, end: 20160816
  2. METFORMIN [Concomitant]
     Active Substance: METFORMIN HYDROCHLORIDE
     Indication: DIABETES MELLITUS
     Dosage: 2 DF, QD
     Route: 065
  3. BRASART [Concomitant]
     Active Substance: VALSARTAN
     Indication: HYPERTENSION
     Dosage: 1 DF, QD
     Route: 065

REACTIONS (3)
  - Pharyngeal oedema [Recovering/Resolving]
  - Dysphagia [Recovering/Resolving]
  - Dyspnoea [Recovering/Resolving]
